FAERS Safety Report 20213695 (Version 6)
Quarter: 2022Q2

REPORT INFORMATION
  Report Type: Report from Study
  Country: US (occurrence: US)
  Receive Date: 20211221
  Receipt Date: 20220406
  Transmission Date: 20220721
  Serious: Yes (Death)
  Sender: FDA-Public Use
  Company Number: US-PFIZER INC-202101797708

PATIENT
  Age: 64 Year
  Sex: Male
  Weight: 75.5 kg

DRUGS (2)
  1. GLASDEGIB [Suspect]
     Active Substance: GLASDEGIB
     Indication: Acute myeloid leukaemia
     Dosage: 100 MG, QD
     Route: 048
     Dates: start: 20211129, end: 20211215
  2. CYTARABINE\DAUNORUBICIN [Suspect]
     Active Substance: CYTARABINE\DAUNORUBICIN
     Indication: Acute myeloid leukaemia
     Dosage: 44 MG/M2 (FREQUENCY: Q48H)
     Route: 042
     Dates: start: 20211124, end: 20211129

REACTIONS (1)
  - Mucormycosis [Fatal]

NARRATIVE: CASE EVENT DATE: 20211211
